FAERS Safety Report 16522931 (Version 1)
Quarter: 2019Q3

REPORT INFORMATION
  Report Type: Spontaneous
  Country: VN (occurrence: VN)
  Receive Date: 20190703
  Receipt Date: 20190703
  Transmission Date: 20191004
  Serious: Yes (Other)
  Sender: FDA-Public Use
  Company Number: PHHY2019VN147872

PATIENT
  Sex: Female

DRUGS (1)
  1. OCTREOTIDE LAR [Suspect]
     Active Substance: OCTREOTIDE
     Indication: NEUROENDOCRINE CARCINOMA METASTATIC
     Dosage: 20 MG, QMO (EVERY 28 DAYS)
     Route: 065

REACTIONS (4)
  - Malignant neoplasm progression [Unknown]
  - Pancreatic duct dilatation [Unknown]
  - Weight decreased [Unknown]
  - Therapy partial responder [Unknown]

NARRATIVE: CASE EVENT DATE: 20190613
